FAERS Safety Report 14540587 (Version 1)
Quarter: 2018Q1

REPORT INFORMATION
  Report Type: Spontaneous
  Country: ES (occurrence: ES)
  Receive Date: 20180216
  Receipt Date: 20180216
  Transmission Date: 20180509
  Serious: Yes (Other)
  Sender: FDA-Public Use
  Company Number: ES-OTSUKA-DJ20070811

PATIENT

DRUGS (1)
  1. ABILIFY [Suspect]
     Active Substance: ARIPIPRAZOLE
     Route: 048
     Dates: start: 20070412

REACTIONS (4)
  - Ear swelling [Unknown]
  - Swelling face [Unknown]
  - Eye swelling [Unknown]
  - Auricular swelling [Unknown]

NARRATIVE: CASE EVENT DATE: 200704
